FAERS Safety Report 5116858-7 (Version None)
Quarter: 2006Q3

REPORT INFORMATION
  Report Type: 
  Country: None (occurrence: None)
  Receive Date: 20060925
  Receipt Date: 20060911
  Transmission Date: 20061208
  Serious: Yes (Hospitalization, Other)
  Sender: FDA-Public Use
  Company Number: 2006110268

PATIENT
  Age: 44 Year
  Sex: Female

DRUGS (2)
  1. DILANTIN [Suspect]
     Indication: CONVULSION
     Dates: start: 20040901, end: 20041001
  2. VASOTEC [Concomitant]

REACTIONS (10)
  - DRUG HYPERSENSITIVITY [None]
  - LIP HAEMORRHAGE [None]
  - OPEN ANGLE GLAUCOMA [None]
  - PERIVASCULAR DERMATITIS [None]
  - PHARYNGOLARYNGEAL PAIN [None]
  - PYREXIA [None]
  - STEVENS-JOHNSON SYNDROME [None]
  - ULCERATIVE KERATITIS [None]
  - URINARY TRACT INFECTION [None]
  - VOMITING [None]
